FAERS Safety Report 9010755 (Version 3)
Quarter: 2013Q2

REPORT INFORMATION
  Report Type: Report from Study
  Country: JP (occurrence: JP)
  Receive Date: 20130109
  Receipt Date: 20130408
  Transmission Date: 20140414
  Serious: Yes (Other)
  Sender: FDA-Public Use
  Company Number: JP-ASTELLAS-2013US000204

PATIENT
  Age: 68 Year
  Sex: Male

DRUGS (13)
  1. ERLOTINIB TABLET [Suspect]
     Indication: ADENOCARCINOMA PANCREAS
     Dosage: 100 MG, UID/QD
     Route: 048
     Dates: start: 20120608, end: 20121102
  2. GEMCITABINE HYDROCHLORIDE [Concomitant]
     Indication: ADENOCARCINOMA PANCREAS
     Dosage: 970 MG/M2, UID/QD
     Route: 042
     Dates: start: 20120608, end: 20120608
  3. GEMCITABINE HYDROCHLORIDE [Concomitant]
     Dosage: 970 MG/M2, UID/QD
     Route: 042
     Dates: start: 20120615, end: 20120615
  4. GEMCITABINE HYDROCHLORIDE [Concomitant]
     Dosage: 970 MG/M2, UID/QD
     Route: 042
     Dates: start: 20120629, end: 20120629
  5. GEMCITABINE HYDROCHLORIDE [Concomitant]
     Dosage: 970 MG/M2, UID/QD
     Route: 042
     Dates: start: 20120706, end: 20120706
  6. GEMCITABINE HYDROCHLORIDE [Concomitant]
     Dosage: 970 MG/M2, UID/QD
     Route: 042
     Dates: start: 20120720, end: 20120720
  7. GEMCITABINE HYDROCHLORIDE [Concomitant]
     Dosage: 970 MG/M2, UID/QD
     Route: 042
     Dates: start: 20120727, end: 20120727
  8. GEMCITABINE HYDROCHLORIDE [Concomitant]
     Dosage: 970 MG/M2, UID/QD
     Route: 042
     Dates: start: 20120810, end: 20120810
  9. GEMCITABINE HYDROCHLORIDE [Concomitant]
     Dosage: 970 MG/M2, UID/QD
     Route: 042
     Dates: start: 20120817, end: 20120817
  10. GEMCITABINE HYDROCHLORIDE [Concomitant]
     Dosage: 970 MG/M2, UID/QD
     Route: 042
     Dates: start: 20120831, end: 20120831
  11. GEMCITABINE HYDROCHLORIDE [Concomitant]
     Dosage: 970 MG/M2, UID/QD
     Route: 042
     Dates: start: 20120907, end: 20120907
  12. GEMCITABINE HYDROCHLORIDE [Concomitant]
     Dosage: 970 MG/M2, UID/QD
     Route: 042
     Dates: start: 20120921, end: 20120921
  13. GEMCITABINE HYDROCHLORIDE [Concomitant]
     Dosage: 970 MG/M2, WEEKLY
     Route: 042
     Dates: start: 20120928

REACTIONS (4)
  - Excessive granulation tissue [Recovering/Resolving]
  - Paronychia [Recovering/Resolving]
  - Malignant neoplasm progression [Unknown]
  - Rash [Recovering/Resolving]
